FAERS Safety Report 22676087 (Version 4)
Quarter: 2023Q4

REPORT INFORMATION
  Report Type: Spontaneous
  Country: DE (occurrence: DE)
  Receive Date: 20230706
  Receipt Date: 20231114
  Transmission Date: 20240110
  Serious: Yes (Death, Hospitalization, Other)
  Sender: FDA-Public Use
  Company Number: DE-INCYTE CORPORATION-2023IN006349

PATIENT
  Age: 80 Year

DRUGS (4)
  1. BENDAMUSTINE HYDROCHLORIDE [Suspect]
     Active Substance: BENDAMUSTINE HYDROCHLORIDE
     Indication: Diffuse large B-cell lymphoma
     Dosage: 2 CYCLES
     Route: 042
     Dates: end: 202212
  2. LENALIDOMIDE [Suspect]
     Active Substance: LENALIDOMIDE
     Indication: Diffuse large B-cell lymphoma
     Dosage: UNK, 2 CYCLES
     Route: 065
     Dates: start: 202210, end: 202211
  3. RITUXIMAB [Suspect]
     Active Substance: RITUXIMAB
     Indication: Diffuse large B-cell lymphoma
     Dosage: 2 CYCLES
     Route: 042
     Dates: end: 202212
  4. TAFASITAMAB [Suspect]
     Active Substance: TAFASITAMAB
     Indication: Diffuse large B-cell lymphoma
     Dosage: 12 MILLIGRAM/KILOGRAM, 2 CYCLES
     Route: 065
     Dates: start: 202210, end: 202211

REACTIONS (7)
  - Pneumonia [Fatal]
  - Diffuse large B-cell lymphoma [Unknown]
  - Hypercalcaemia [Unknown]
  - Disease progression [Unknown]
  - Blood lactate dehydrogenase abnormal [Unknown]
  - Blood creatinine abnormal [Unknown]
  - Product use issue [Unknown]
